FAERS Safety Report 23986308 (Version 2)
Quarter: 2024Q3

REPORT INFORMATION
  Report Type: Spontaneous
  Country: JP (occurrence: JP)
  Receive Date: 20240618
  Receipt Date: 20240711
  Transmission Date: 20241017
  Serious: Yes (Other)
  Sender: OTSUKA
  Company Number: JP-OTSUKA-2024_017082

PATIENT
  Age: 88 Year
  Sex: Female

DRUGS (1)
  1. TOLVAPTAN [Suspect]
     Active Substance: TOLVAPTAN
     Indication: Cardiac failure
     Dosage: UNK
     Route: 065

REACTIONS (2)
  - Cardiac failure [Unknown]
  - Dehydration [Unknown]
